FAERS Safety Report 6587819-6 (Version None)
Quarter: 2010Q1

REPORT INFORMATION
  Report Type: 
  Country: None (occurrence: None)
  Receive Date: 20100218
  Receipt Date: 20100209
  Transmission Date: 20100710
  Serious: Yes (Hospitalization)
  Sender: FDA-Public Use
  Company Number: PHHY2009IT55892

PATIENT
  Sex: Female

DRUGS (9)
  1. TEGRETOL [Suspect]
     Indication: TEMPORAL LOBE EPILEPSY
     Dosage: 1 TABLET H 8 A.M. AND ? TABLET H 8 P.M.
     Route: 048
  2. TEGRETOL [Suspect]
     Dosage: 200 MG, BID
     Route: 048
     Dates: start: 20090609, end: 20090823
  3. AUGMENTIN [Concomitant]
  4. RIVOTRIL [Concomitant]
     Dosage: 10 DROPS PER HOURS
  5. BENEXOL [Concomitant]
     Dosage: 1 TABLET
  6. FOLINA [Concomitant]
     Dosage: 5 MG
  7. VECLAM [Concomitant]
  8. RANITIDINE HCL [Concomitant]
     Dosage: 30 MG
  9. CLARITIN [Concomitant]

REACTIONS (10)
  - COUGH [None]
  - DERMATITIS [None]
  - DRUG RASH WITH EOSINOPHILIA AND SYSTEMIC SYMPTOMS [None]
  - DYSPNOEA [None]
  - EOSINOPHILIA [None]
  - HYPOXIA [None]
  - LUNG DISORDER [None]
  - PRURITUS [None]
  - RASH [None]
  - RESPIRATORY FAILURE [None]
